FAERS Safety Report 15099323 (Version 1)
Quarter: 2018Q3

REPORT INFORMATION
  Report Type: Spontaneous
  Country: IT (occurrence: IT)
  Receive Date: 20180702
  Receipt Date: 20180702
  Transmission Date: 20181010
  Serious: Yes (Hospitalization)
  Sender: FDA-Public Use
  Company Number: IT-SHIRE-IT201822862

PATIENT

DRUGS (4)
  1. TARGOSID [Concomitant]
     Active Substance: TEICOPLANIN
     Indication: PROPHYLAXIS
  2. PEGASPARGASE [Suspect]
     Active Substance: PEGASPARGASE
     Indication: LEUKAEMIA RECURRENT
     Dosage: CYCLICAL
     Route: 042
     Dates: start: 20170628
  3. MEROPENEM. [Concomitant]
     Active Substance: MEROPENEM
     Indication: PROPHYLAXIS
  4. ZOFRAN [Concomitant]
     Active Substance: ONDANSETRON HYDROCHLORIDE
     Indication: VOMITING

REACTIONS (3)
  - Hypertriglyceridaemia [Recovered/Resolved]
  - Hyperamylasaemia [Recovered/Resolved]
  - Hyperlipasaemia [Recovered/Resolved]

NARRATIVE: CASE EVENT DATE: 20170707
